FAERS Safety Report 18056511 (Version 2)
Quarter: 2020Q3

REPORT INFORMATION
  Report Type: Spontaneous
  Country: GB (occurrence: GB)
  Receive Date: 20200722
  Receipt Date: 20200805
  Transmission Date: 20201103
  Serious: Yes (Other)
  Sender: FDA-Public Use
  Company Number: NVSC2020GB200773

PATIENT
  Age: 67 Year
  Sex: Male

DRUGS (3)
  1. ABIRATERONE ACETATE. [Suspect]
     Active Substance: ABIRATERONE ACETATE
     Indication: PROSTATE CANCER
     Dosage: 1000 MG, QD
     Route: 048
     Dates: start: 20200210, end: 20200224
  2. PREDNISOLONE. [Suspect]
     Active Substance: PREDNISOLONE
     Indication: PROSTATE CANCER
     Dosage: 10 MG, QD
     Route: 048
     Dates: start: 20200210
  3. ABIRATERONE ACETATE. [Suspect]
     Active Substance: ABIRATERONE ACETATE
     Dosage: 500 MG, QD
     Route: 048
     Dates: start: 20200421

REACTIONS (1)
  - Liver function test abnormal [Recovered/Resolved]

NARRATIVE: CASE EVENT DATE: 20200626
